FAERS Safety Report 9942402 (Version 1)
Quarter: 2014Q1

REPORT INFORMATION
  Report Type: Other
  Country: ES (occurrence: ES)
  Receive Date: 20140303
  Receipt Date: 20140303
  Transmission Date: 20141002
  Serious: Yes (Hospitalization)
  Sender: FDA-Public Use
  Company Number: ES-BRISTOL-MYERS SQUIBB COMPANY-20342036

PATIENT
  Sex: Male

DRUGS (7)
  1. ARIPIPRAZOLE [Suspect]
     Indication: SCHIZOPHRENIA, PARANOID TYPE
  2. RISPERIDONE [Suspect]
     Indication: SCHIZOPHRENIA, PARANOID TYPE
  3. OLANZAPINE [Suspect]
     Indication: SCHIZOPHRENIA, PARANOID TYPE
  4. QUETIAPINE [Suspect]
     Indication: SCHIZOPHRENIA, PARANOID TYPE
  5. PALIPERIDONE [Suspect]
     Indication: SCHIZOPHRENIA, PARANOID TYPE
  6. CLOZAPINE [Concomitant]
     Indication: PSYCHIATRIC SYMPTOM
     Dosage: 600 MG
  7. FLUNITRAZEPAM [Concomitant]

REACTIONS (2)
  - Rhabdomyolysis [Unknown]
  - Renal tubular necrosis [Unknown]
